FAERS Safety Report 5725671-9 (Version None)
Quarter: 2008Q2

REPORT INFORMATION
  Report Type: 
  Country: None (occurrence: None)
  Receive Date: 20080501
  Receipt Date: 20080424
  Transmission Date: 20081010
  Serious: Yes (Hospitalization)
  Sender: FDA-Public Use
  Company Number: US-ABBOTT-08P-163-0449186-00

PATIENT
  Sex: Female
  Weight: 46.762 kg

DRUGS (2)
  1. SYNTHROID [Suspect]
     Indication: HORMONE REPLACEMENT THERAPY
     Route: 048
     Dates: start: 19880101, end: 20080418
  2. SYNTHROID [Suspect]
     Dosage: CHANGED TO 150MCG DAILY
     Route: 048
     Dates: start: 20080419

REACTIONS (3)
  - BLOOD THYROID STIMULATING HORMONE INCREASED [None]
  - FATIGUE [None]
  - THYROIDECTOMY [None]
